FAERS Safety Report 10361007 (Version 7)
Quarter: 2014Q4

REPORT INFORMATION
  Report Type: Report from Study
  Country: JP (occurrence: JP)
  Receive Date: 20140804
  Receipt Date: 20141218
  Transmission Date: 20150528
  Serious: Yes (Hospitalization)
  Sender: FDA-Public Use
  Company Number: KR-OTSUKA-US-2014-11907

PATIENT

DRUGS (16)
  1. ESZOPICLONE. [Concomitant]
     Active Substance: ESZOPICLONE
     Indication: INSOMNIA
     Dosage: 1 MG MILLIGRAM(S), UNK
     Route: 048
     Dates: start: 20140702, end: 20140715
  2. LORAZEPAM. [Concomitant]
     Active Substance: LORAZEPAM
     Indication: ANXIETY
     Dosage: 1 MG MILLIGRAM(S), UNK
     Route: 048
     Dates: start: 20140723
  3. FLUNITRAZEPAM [Concomitant]
     Active Substance: FLUNITRAZEPAM
     Indication: INSOMNIA
     Dosage: 1 MG MILLIGRAM(S), UNK
     Route: 048
     Dates: start: 20140716, end: 20140727
  4. ETIZOLAM [Concomitant]
     Active Substance: ETIZOLAM
     Indication: ANXIETY
     Dosage: 0.25 MG MILLIGRAM(S), PRN
     Route: 048
     Dates: start: 20140703
  5. BLINDED OPC-14597 [Suspect]
     Active Substance: CILOSTAZOL
     Indication: BIPOLAR I DISORDER
     Dosage: UNK
     Dates: start: 20140603, end: 2014
  6. MECOBALAMIN [Concomitant]
     Active Substance: METHYLCOBALAMIN
     Indication: PERIPHERAL CIRCULATORY FAILURE
     Dosage: 1000 ?G MICROGRAM(S), UNK
     Route: 048
     Dates: start: 20140702, end: 20140708
  7. ARIPIPRAZOLE. [Concomitant]
     Active Substance: ARIPIPRAZOLE
     Dosage: 12 MG MILLIGRAM(S), UNK
     Route: 048
     Dates: start: 20140723, end: 20140730
  8. BFLUID [Concomitant]
     Active Substance: AMINO ACIDS\DEXTROSE\ELECTROLYTES NOS\VITAMINS
     Indication: MALNUTRITION
     Dosage: 500 ML MILLILITRE(S), UNK
     Route: 042
     Dates: start: 20140723, end: 20140723
  9. ESZOPICLONE. [Concomitant]
     Active Substance: ESZOPICLONE
     Dosage: 2 MG MILLIGRAM(S), UNK
     Route: 048
     Dates: start: 20140716
  10. ARIPIPRAZOLE. [Concomitant]
     Active Substance: ARIPIPRAZOLE
     Indication: BIPOLAR I DISORDER
     Dosage: 6 MG MILLIGRAM(S), UNK
     Route: 048
     Dates: start: 20140716, end: 20140722
  11. GOREISAN                           /08015901/ [Concomitant]
     Indication: DIARRHOEA
     Dosage: 7.5 G GRAM(S), UNK
     Route: 048
     Dates: start: 20140731
  12. MECOBALAMIN [Concomitant]
     Active Substance: METHYLCOBALAMIN
     Dosage: 500 ?G MICROGRAM(S), UNK
     Route: 048
     Dates: start: 20140709, end: 20140715
  13. REBAMIPIDE [Concomitant]
     Active Substance: REBAMIPIDE
     Indication: CHRONIC GASTRITIS
     Dosage: 100 MG MILLIGRAM(S), UNK
     Route: 048
     Dates: start: 20140709, end: 20140730
  14. ESCITALOPRAM OXALATE. [Concomitant]
     Active Substance: ESCITALOPRAM OXALATE
     Indication: BIPOLAR I DISORDER
     Dosage: 10 MG MILLIGRAM(S), UNK
     Route: 048
     Dates: start: 20140723, end: 20140730
  15. ESCITALOPRAM OXALATE. [Concomitant]
     Active Substance: ESCITALOPRAM OXALATE
     Dosage: 20 MG MILLIGRAM(S), UNK
     Route: 048
     Dates: start: 20140731
  16. HERBAL NOS [Concomitant]
     Active Substance: HERBALS
     Indication: DECREASED APPETITE
     Dosage: 5.625 G GRAM(S), UNK
     Route: 048
     Dates: start: 20140723, end: 20140725

REACTIONS (1)
  - Depressive symptom [Recovered/Resolved]

NARRATIVE: CASE EVENT DATE: 20140801
